FAERS Safety Report 9480796 (Version 2)
Quarter: 2013Q3

REPORT INFORMATION
  Report Type: Spontaneous
  Country: US (occurrence: PR)
  Receive Date: 20130828
  Receipt Date: 20130828
  Transmission Date: 20140515
  Serious: Yes (Death)
  Sender: FDA-Public Use
  Company Number: US-AMGEN-KDL112809

PATIENT
  Sex: Female

DRUGS (1)
  1. ENBREL [Suspect]
     Indication: PRODUCT USED FOR UNKNOWN INDICATION
     Dosage: UNK UNK, UNK
     Route: 065
     Dates: end: 20050129

REACTIONS (6)
  - Myocardial infarction [Fatal]
  - Vomiting [Fatal]
  - Diarrhoea [Fatal]
  - Dehydration [Fatal]
  - Gastrointestinal disorder [Fatal]
  - Back disorder [Fatal]
